FAERS Safety Report 9254446 (Version 3)
Quarter: 2013Q3

REPORT INFORMATION
  Report Type: Spontaneous
  Country: US (occurrence: US)
  Receive Date: 20130425
  Receipt Date: 20130701
  Transmission Date: 20140515
  Serious: Yes (Death, Other)
  Sender: FDA-Public Use
  Company Number: US-PFIZER INC-2013128134

PATIENT
  Age: 75 Year
  Sex: Female
  Weight: 118 kg

DRUGS (3)
  1. GABAPENTIN [Suspect]
     Indication: POST HERPETIC NEURALGIA
     Dosage: UNK
  2. LOPRESSOR [Concomitant]
     Dosage: UNK
  3. FISH OIL [Concomitant]

REACTIONS (4)
  - Death [Fatal]
  - Blindness transient [Recovered/Resolved]
  - Eye disorder [Unknown]
  - Renal disorder [Unknown]
